FAERS Safety Report 21079495 (Version 1)
Quarter: 2022Q3

REPORT INFORMATION
  Report Type: Spontaneous
  Country: US (occurrence: US)
  Receive Date: 20220714
  Receipt Date: 20220714
  Transmission Date: 20221027
  Serious: No
  Sender: FDA-Public Use
  Company Number: US-SA-SAC20220713000706

PATIENT
  Sex: Male

DRUGS (1)
  1. DUPIXENT [Suspect]
     Active Substance: DUPILUMAB
     Indication: Asthma
     Dosage: DOSE: 300 MG/2ML FREQUENCY: 300MG/2ML: INJECT 1 SYRINGE UNDER THE SKIN (SUBCUTANEOUS INJECTION) EVER
     Route: 058
     Dates: start: 20210825

REACTIONS (1)
  - Dry eye [Not Recovered/Not Resolved]
